FAERS Safety Report 24970353 (Version 2)
Quarter: 2025Q1

REPORT INFORMATION
  Report Type: Spontaneous
  Country: MY (occurrence: MY)
  Receive Date: 20250214
  Receipt Date: 20250225
  Transmission Date: 20250408
  Serious: Yes (Life-Threatening, Hospitalization, Other)
  Sender: AUROBINDO
  Company Number: MY-MLMSERVICE-20250127-PI371851-00050-1

PATIENT
  Age: 31 Year
  Sex: Female

DRUGS (9)
  1. AMLODIPINE [Suspect]
     Active Substance: AMLODIPINE BESYLATE
     Indication: Hypertension
     Dosage: 10 MILLIGRAM, ONCE A DAY
     Route: 065
  2. METOPROLOL [Suspect]
     Active Substance: METOPROLOL
     Indication: Hypertension
     Dosage: 500 MILLIGRAM, TWO TIMES A DAY
     Route: 065
  3. SODIUM CHLORIDE [Concomitant]
     Active Substance: SODIUM CHLORIDE
     Indication: Product used for unknown indication
     Route: 040
  4. ATROPINE [Concomitant]
     Active Substance: ATROPINE
     Indication: Hypotension
     Route: 042
  5. ATROPINE [Concomitant]
     Active Substance: ATROPINE
     Indication: Bradycardia
  6. EPINEPHRINE [Concomitant]
     Active Substance: EPINEPHRINE
     Indication: Product used for unknown indication
     Route: 042
  7. CALCIUM GLUCONATE [Concomitant]
     Active Substance: CALCIUM GLUCONATE
     Indication: Hyperkalaemia
     Route: 042
  8. ACTRAPID [Concomitant]
     Active Substance: INSULIN HUMAN
     Indication: Hyperkalaemia
     Route: 065
  9. DEXTROSE [Concomitant]
     Active Substance: DEXTROSE MONOHYDRATE
     Indication: Hyperkalaemia
     Route: 065

REACTIONS (3)
  - BRASH syndrome [Recovered/Resolved]
  - Bradycardia [Unknown]
  - Hypotension [Unknown]
